FAERS Safety Report 8389353-X (Version None)
Quarter: 2012Q2

REPORT INFORMATION
  Report Type: 
  Country: None (occurrence: None)
  Receive Date: 20120528
  Receipt Date: 20120522
  Transmission Date: 20120825
  Serious: Yes (Hospitalization, Other)
  Sender: FDA-Public Use
  Company Number: GB-AMGEN-GBRSP2012011154

PATIENT
  Age: 77 Year
  Sex: Male

DRUGS (8)
  1. ASPIRIN [Concomitant]
     Dosage: 75 MG, QD
     Route: 048
  2. BISOPROLOL FUMARATE [Concomitant]
     Dosage: 1.25 MG, QD
     Route: 048
  3. ESCITALOPRAM [Concomitant]
     Indication: DEPRESSION
     Dosage: 20 MG, QD
     Route: 048
  4. LANTHANUM CARBONATE [Concomitant]
     Indication: BLOOD PHOSPHORUS INCREASED
     Dosage: 750 MG, TID
     Route: 048
  5. OMEPRAZOLE [Concomitant]
     Indication: DYSPEPSIA
     Dosage: 20 MG, QD
  6. QUININE SULFATE [Concomitant]
     Indication: MUSCLE SPASMS
     Dosage: 300 MG, QD
  7. ARANESP [Concomitant]
     Indication: ANAEMIA
     Dosage: 40 MUG, Q2WK
  8. CINACALCET HYDROCHLORIDE [Suspect]
     Indication: HYPERPARATHYROIDISM SECONDARY
     Dosage: 30 MG, QD
     Route: 048
     Dates: start: 20120130, end: 20120219

REACTIONS (5)
  - HALLUCINATION, VISUAL [None]
  - URINARY TRACT INFECTION [None]
  - CEREBRAL SMALL VESSEL ISCHAEMIC DISEASE [None]
  - CONFUSIONAL STATE [None]
  - BLOOD CALCIUM DECREASED [None]
